FAERS Safety Report 5714933-7 (Version None)
Quarter: 2008Q2

REPORT INFORMATION
  Report Type: 
  Country: None (occurrence: None)
  Receive Date: 20080423
  Receipt Date: 20080418
  Transmission Date: 20081010
  Serious: Yes (Life-Threatening)
  Sender: FDA-Public Use
  Company Number: GB-ASTRAZENECA-2008GB00761

PATIENT
  Age: 39 Year
  Sex: Male

DRUGS (4)
  1. LIGNOCAINE [Suspect]
     Indication: LOCAL ANAESTHESIA
     Route: 058
     Dates: start: 20080402, end: 20080402
  2. CHIROCAINE [Suspect]
     Indication: LOCAL ANAESTHESIA
     Dosage: 107048W01
     Route: 058
     Dates: start: 20080402, end: 20080402
  3. CYMBALTA [Concomitant]
     Indication: DEPRESSION
     Dosage: 30 MG
     Route: 048
  4. PROPRANOLOL [Concomitant]
     Indication: ANXIETY
     Dosage: 40 MG
     Route: 048

REACTIONS (3)
  - BRADYCARDIA [None]
  - HYPOTENSION [None]
  - SYNCOPE VASOVAGAL [None]
